FAERS Safety Report 18124404 (Version 4)
Quarter: 2020Q3

REPORT INFORMATION
  Report Type: Spontaneous
  Country: US (occurrence: US)
  Receive Date: 20200807
  Receipt Date: 20200813
  Transmission Date: 20201103
  Serious: No
  Sender: FDA-Public Use
  Company Number: US-PFIZER INC-2020298963

PATIENT
  Age: 59 Year
  Sex: Female
  Weight: 88.45 kg

DRUGS (3)
  1. TRIAZOLAM. [Suspect]
     Active Substance: TRIAZOLAM
     Dosage: 3/4 OF A TABLET
     Dates: end: 20200601
  2. TRIAZOLAM. [Suspect]
     Active Substance: TRIAZOLAM
     Indication: SLEEP DISORDER
     Dosage: 0.25 MG
     Dates: start: 2008
  3. BELSOMRA [Concomitant]
     Active Substance: SUVOREXANT
     Dosage: 0.5 DF (HALF)

REACTIONS (4)
  - Drug ineffective [Not Recovered/Not Resolved]
  - Apathy [Unknown]
  - Sedation [Unknown]
  - Cortisol abnormal [Unknown]

NARRATIVE: CASE EVENT DATE: 2017
